FAERS Safety Report 19115657 (Version 1)
Quarter: 2021Q2

REPORT INFORMATION
  Report Type: Spontaneous
  Country: FR (occurrence: FR)
  Receive Date: 20210409
  Receipt Date: 20210409
  Transmission Date: 20210717
  Serious: Yes (Other)
  Sender: FDA-Public Use
  Company Number: FR-TEVA-2021-FR-1898792

PATIENT
  Age: 35 Year
  Sex: Female
  Weight: 60 kg

DRUGS (1)
  1. TAMOXIFENE (CITRATE DE) [Suspect]
     Active Substance: TAMOXIFEN CITRATE
     Indication: DESMOID TUMOUR
     Dosage: 20 MG
     Route: 048
     Dates: start: 201909

REACTIONS (2)
  - Condition aggravated [Recovered/Resolved]
  - Osteoporotic fracture [Not Recovered/Not Resolved]

NARRATIVE: CASE EVENT DATE: 20200310
